FAERS Safety Report 10359970 (Version 3)
Quarter: 2014Q3

REPORT INFORMATION
  Report Type: Spontaneous
  Country: IT (occurrence: None)
  Receive Date: 20140730
  Receipt Date: 20140808
  Transmission Date: 20150326
  Serious: Yes (Other)
  Sender: FDA-Public Use
  Company Number: 2451340

PATIENT
  Age: 1 Month
  Sex: Male
  Weight: 1 kg

DRUGS (1)
  1. MEROPENEM. [Suspect]
     Active Substance: MEROPENEM
     Indication: SEPSIS
     Dosage: 60 MG MILLIGRAM INTRAVENOUS (NOT OTHERWISE SPECIFIED)?
     Route: 042
     Dates: start: 20140607, end: 20140621

REACTIONS (7)
  - Jaundice cholestatic [None]
  - Faeces pale [None]
  - Blood bilirubin increased [None]
  - Aspartate aminotransferase increased [None]
  - Hepatotoxicity [None]
  - Ocular icterus [None]
  - Alanine aminotransferase increased [None]

NARRATIVE: CASE EVENT DATE: 20140616
